FAERS Safety Report 10856211 (Version 1)
Quarter: 2015Q1

REPORT INFORMATION
  Report Type: Spontaneous
  Country: GB (occurrence: GB)
  Receive Date: 20150223
  Receipt Date: 20150223
  Transmission Date: 20150721
  Serious: Yes (Other)
  Sender: FDA-Public Use
  Company Number: GB-JNJFOC-20150210087

PATIENT
  Age: 62 Year
  Sex: Male
  Weight: 95.31 kg

DRUGS (11)
  1. PARACETAMOL [Concomitant]
     Active Substance: ACETAMINOPHEN
     Route: 065
     Dates: start: 20140630, end: 20140917
  2. CANAGLIFLOZIN [Suspect]
     Active Substance: CANAGLIFLOZIN
     Indication: PRODUCT USED FOR UNKNOWN INDICATION
     Route: 065
     Dates: start: 20141001
  3. LANSOPRAZOLE. [Concomitant]
     Active Substance: LANSOPRAZOLE
     Route: 065
     Dates: start: 20140630, end: 20140728
  4. METFORMIN [Concomitant]
     Active Substance: METFORMIN HYDROCHLORIDE
     Route: 065
     Dates: start: 20140630, end: 20140728
  5. WARFARIN SODIUM. [Concomitant]
     Active Substance: WARFARIN SODIUM
     Route: 065
     Dates: start: 20140630, end: 20140728
  6. AMIODARONE [Concomitant]
     Active Substance: AMIODARONE
     Route: 065
     Dates: start: 20140630, end: 20140727
  7. FLUCLOXACILLIN [Concomitant]
     Active Substance: FLUCLOXACILLIN
     Route: 065
     Dates: start: 20140630, end: 20140917
  8. SILDENAFIL. [Concomitant]
     Active Substance: SILDENAFIL
     Route: 065
     Dates: start: 20140630, end: 20140917
  9. E45 [Concomitant]
     Active Substance: LANOLIN\LIGHT MINERAL OIL\PARAFFIN
     Route: 065
     Dates: start: 20140710, end: 20141006
  10. GLICLAZIDE [Concomitant]
     Active Substance: GLICLAZIDE
     Route: 065
     Dates: start: 20140630, end: 20140728
  11. SIMVASTATIN. [Concomitant]
     Active Substance: SIMVASTATIN
     Route: 065
     Dates: start: 20140630, end: 20140728

REACTIONS (2)
  - Paranoia [Recovered/Resolved]
  - Insomnia [Recovered/Resolved]

NARRATIVE: CASE EVENT DATE: 20141004
